FAERS Safety Report 7123473-2 (Version None)
Quarter: 2010Q4

REPORT INFORMATION
  Report Type: 
  Country: None (occurrence: None)
  Receive Date: 20101125
  Receipt Date: 20101118
  Transmission Date: 20110411
  Serious: No
  Sender: FDA-Public Use
  Company Number: US-BIOGENIDEC-2010BI040857

PATIENT
  Age: 56 Year
  Sex: Female

DRUGS (6)
  1. AVONEX [Suspect]
     Indication: MULTIPLE SCLEROSIS
     Route: 030
     Dates: start: 20020311, end: 20030101
  2. AVONEX [Suspect]
     Route: 030
     Dates: start: 20030101
  3. CORTISONE ACETATE INJ [Concomitant]
     Indication: INTERVERTEBRAL DISC DISORDER
     Route: 030
     Dates: start: 20080101, end: 20080101
  4. CORTISONE ACETATE INJ [Concomitant]
     Route: 030
     Dates: start: 20080101, end: 20080101
  5. MORPHINE [Concomitant]
     Indication: INTERVERTEBRAL DISC DISORDER
     Route: 048
     Dates: start: 20000101
  6. VICODIN [Concomitant]
     Route: 048
     Dates: start: 20000101

REACTIONS (7)
  - EYE PAIN [None]
  - FACIAL PAIN [None]
  - HEADACHE [None]
  - NECK PAIN [None]
  - RHINALGIA [None]
  - SWELLING FACE [None]
  - TOOTH ABSCESS [None]
